FAERS Safety Report 18548929 (Version 3)
Quarter: 2021Q3

REPORT INFORMATION
  Report Type: Spontaneous
  Country: CA (occurrence: CA)
  Receive Date: 20201126
  Receipt Date: 20210813
  Transmission Date: 20211014
  Serious: Yes (Hospitalization, Other)
  Sender: FDA-Public Use
  Company Number: CA-MACLEODS PHARMACEUTICALS US LTD-MAC2020029189

PATIENT

DRUGS (6)
  1. DULOXETINE 60 MG [Suspect]
     Active Substance: DULOXETINE
     Dosage: 30 MILLIGRAM, QOD, DULOXETINE 60 MG/D TAPERED DOWN TO 30 MG EVERY OTHER DAY FOR 3 DOSES
     Route: 065
  2. XYLOMETAZOLINE [Suspect]
     Active Substance: XYLOMETAZOLINE
     Indication: CONDITION AGGRAVATED
     Dosage: UNK, 2?3 TIMES DAILY, NASAL DECONGESTANT SPRAY
     Route: 061
  3. SALBUTAMOL [Concomitant]
     Active Substance: ALBUTEROL
     Indication: PRODUCT USED FOR UNKNOWN INDICATION
     Dosage: UNK UNK, PRN, TAKEN AS NEEDED
     Route: 065
  4. DULOXETINE 60 MG [Suspect]
     Active Substance: DULOXETINE
     Indication: SCIATICA
     Dosage: 60 MILLIGRAM, QD
     Route: 065
  5. XYLOMETAZOLINE [Suspect]
     Active Substance: XYLOMETAZOLINE
     Indication: NASAL CONGESTION
     Dosage: UNK UNK, QD, NASAL DECONGESTANT SPRAY, DOSE INCREASED
     Route: 061
  6. BUDESONIDE/FORMOTEROL FUMARATE DIHYDRATE [Concomitant]
     Active Substance: BUDESONIDE\FORMOTEROL FUMARATE DIHYDRATE
     Indication: PRODUCT USED FOR UNKNOWN INDICATION
     Dosage: UNK

REACTIONS (5)
  - Thunderclap headache [Recovered/Resolved]
  - Rebound nasal congestion [Unknown]
  - Reversible cerebral vasoconstriction syndrome [Recovered/Resolved]
  - Subarachnoid haemorrhage [Recovered/Resolved]
  - Hypertension [Recovered/Resolved]
